FAERS Safety Report 9833143 (Version 1)
Quarter: 2014Q1

REPORT INFORMATION
  Report Type: Spontaneous
  Country: ES (occurrence: ES)
  Receive Date: 20140121
  Receipt Date: 20140121
  Transmission Date: 20141002
  Serious: Yes (Other)
  Sender: FDA-Public Use
  Company Number: ES-009507513-1401ESP009060

PATIENT
  Sex: Male

DRUGS (1)
  1. EFFICIB [Suspect]
     Indication: DIABETES MELLITUS
     Dosage: 1 DF, TWICE DAILY
     Route: 048
     Dates: start: 20100307, end: 20100607

REACTIONS (3)
  - Weight decreased [Recovered/Resolved]
  - Erythema [Recovered/Resolved]
  - Decreased appetite [Recovered/Resolved]
